FAERS Safety Report 8168058-4 (Version None)
Quarter: 2012Q1

REPORT INFORMATION
  Report Type: 
  Country: None (occurrence: None)
  Receive Date: 20120227
  Receipt Date: 20120215
  Transmission Date: 20120608
  Serious: Yes (Other)
  Sender: FDA-Public Use
  Company Number: PHHY2012CA014097

PATIENT
  Sex: Female
  Weight: 103 kg

DRUGS (5)
  1. LIPID MODIFYING AGENTS [Concomitant]
  2. ANGIOTENSIN RECEPTOR BLOCKER [Concomitant]
  3. BETA BLOCKING AGENTS [Concomitant]
  4. ANTIHYPERGLYCEMICS [Concomitant]
  5. ALISKIREN [Suspect]
     Dosage: 150 MG, UNK

REACTIONS (4)
  - BLOOD CREATININE INCREASED [None]
  - GLYCOSYLATED HAEMOGLOBIN INCREASED [None]
  - BLOOD PRESSURE SYSTOLIC DECREASED [None]
  - URINE ALBUMIN/CREATININE RATIO INCREASED [None]
